FAERS Safety Report 23922980 (Version 3)
Quarter: 2025Q1

REPORT INFORMATION
  Report Type: Spontaneous
  Country: FR (occurrence: FR)
  Receive Date: 20240531
  Receipt Date: 20250320
  Transmission Date: 20250408
  Serious: Yes (Death)
  Sender: TEVA
  Company Number: None

PATIENT
  Age: 76 Year
  Sex: Female

DRUGS (1)
  1. SOTALOL [Suspect]
     Active Substance: SOTALOL
     Indication: Arrhythmia
     Dosage: 80MG (1-0-1)?SOTALOL (HYDROCHLORIDE)
     Route: 048
     Dates: start: 20240220, end: 20240312

REACTIONS (3)
  - Arrhythmia [Fatal]
  - Failure to suspend medication [Fatal]
  - Product administered by wrong person [Fatal]

NARRATIVE: CASE EVENT DATE: 20240312
